FAERS Safety Report 9179063 (Version 1)
Quarter: 2013Q1

REPORT INFORMATION
  Report Type: Spontaneous
  Country: US (occurrence: US)
  Receive Date: 20130321
  Receipt Date: 20130321
  Transmission Date: 20140127
  Serious: No
  Sender: FDA-Public Use
  Company Number: US-ASTRAZENECA-2013SE09096

PATIENT
  Age: 62 Year
  Sex: Female
  Weight: 72.6 kg

DRUGS (2)
  1. NEXIUM [Suspect]
     Indication: GASTROOESOPHAGEAL REFLUX DISEASE
     Route: 048
     Dates: start: 201208
  2. LIPITOR [Concomitant]
     Indication: BLOOD CHOLESTEROL INCREASED

REACTIONS (5)
  - Back injury [Unknown]
  - Sleep disorder due to general medical condition, insomnia type [Unknown]
  - Gastrooesophageal reflux disease [Unknown]
  - Blood cholesterol increased [Unknown]
  - Drug dose omission [Unknown]
